FAERS Safety Report 8504613 (Version 7)
Quarter: 2013Q1

REPORT INFORMATION
  Report Type: Spontaneous
  Country: US (occurrence: US)
  Receive Date: 20120411
  Receipt Date: 20130305
  Transmission Date: 20140127
  Serious: Yes (Other)
  Sender: FDA-Public Use
  Company Number: US-PFIZER INC-2012086333

PATIENT
  Age: 63 Year
  Sex: Female
  Weight: 68.03 kg

DRUGS (8)
  1. EFFEXOR [Suspect]
     Indication: THINKING ABNORMAL
     Dosage: 75 MG, DAILY
  2. EFFEXOR [Suspect]
     Dosage: UKN, EVERY ALTERNATE DAY
     Dates: start: 201302
  3. EFFEXOR [Suspect]
     Dosage: 300 MG, UNK
  4. VENLAFAXINE HYDROCHLORIDE [Suspect]
     Indication: THINKING ABNORMAL
     Dosage: 75 MG, DAILY
     Dates: start: 2012
  5. VENLAFAXINE HYDROCHLORIDE [Suspect]
     Dosage: UNK, ALTERNATE DAY
     Dates: start: 201302
  6. VENLAFAXINE HYDROCHLORIDE [Suspect]
     Dosage: 300 MG, UNK
  7. LEVOTHYROXINE [Concomitant]
     Indication: THYROID DISORDER
     Dosage: 100 UG, DAILY
  8. TRAZODONE [Concomitant]
     Indication: SLEEP DISORDER
     Dosage: 100 MG, DAILY

REACTIONS (17)
  - Diplopia [Unknown]
  - Dyspnoea [Unknown]
  - Throat tightness [Unknown]
  - Renal pain [Unknown]
  - Dizziness [Unknown]
  - Retching [Unknown]
  - Paraesthesia [Unknown]
  - Withdrawal syndrome [Unknown]
  - Headache [Not Recovered/Not Resolved]
  - Off label use [Unknown]
  - Influenza like illness [Unknown]
  - Abdominal discomfort [Unknown]
  - Nervousness [Unknown]
  - Anxiety [Unknown]
  - Pain [Unknown]
  - Thinking abnormal [Unknown]
  - Drug intolerance [Unknown]
